FAERS Safety Report 7486295-9 (Version None)
Quarter: 2011Q2

REPORT INFORMATION
  Report Type: 
  Country: None (occurrence: None)
  Receive Date: 20110517
  Receipt Date: 20110511
  Transmission Date: 20111010
  Serious: Yes (Hospitalization)
  Sender: FDA-Public Use
  Company Number: FR-KINGPHARMUSA00001-K201100587

PATIENT
  Age: 72 Year
  Sex: Female

DRUGS (6)
  1. ACETAMINOPHEN AND TRAMADOL HCL [Suspect]
     Dosage: UNK
     Route: 048
     Dates: start: 20101208, end: 20101208
  2. ALTACE [Suspect]
     Dosage: UNK
     Route: 048
     Dates: start: 20101208, end: 20101208
  3. CLONAZEPAM [Suspect]
     Dosage: UNK
     Route: 048
     Dates: start: 20101208, end: 20101208
  4. OMEPRAZOLE [Suspect]
     Dosage: UNK
     Route: 048
     Dates: start: 20101208, end: 20101208
  5. HYDROCHLOROTHIAZIDE [Suspect]
     Dosage: UNK
     Route: 048
     Dates: start: 20101208, end: 20101208
  6. NEBIVOLOL HCL [Suspect]
     Dosage: UNK
     Route: 048
     Dates: start: 20101208, end: 20101208

REACTIONS (6)
  - INTENTIONAL OVERDOSE [None]
  - RENAL FAILURE ACUTE [None]
  - HEPATITIS [None]
  - RHABDOMYOLYSIS [None]
  - BRADYCARDIA [None]
  - SOMNOLENCE [None]
